FAERS Safety Report 5308183-6 (Version None)
Quarter: 2007Q2

REPORT INFORMATION
  Report Type: 
  Country: None (occurrence: None)
  Receive Date: 20070426
  Receipt Date: 20070418
  Transmission Date: 20071010
  Serious: Yes (Other)
  Sender: FDA-Public Use
  Company Number: PHEH2007US05668

PATIENT
  Sex: Female

DRUGS (4)
  1. ZELNORM [Suspect]
     Indication: CONSTIPATION
     Dosage: 6 MG, BID
     Route: 048
     Dates: start: 20050101, end: 20070401
  2. LIPITOR [Concomitant]
  3. AVANDIA [Concomitant]
  4. ANTIHYPERTENSIVES [Concomitant]

REACTIONS (8)
  - BLOOD POTASSIUM DECREASED [None]
  - DIZZINESS [None]
  - FALL [None]
  - FATIGUE [None]
  - HEART RATE INCREASED [None]
  - HYPERSOMNIA [None]
  - INFLUENZA [None]
  - JOINT DISLOCATION [None]
